FAERS Safety Report 5593592-0 (Version None)
Quarter: 2008Q1

REPORT INFORMATION
  Report Type: 
  Country: None (occurrence: None)
  Receive Date: 20080116
  Receipt Date: 20080111
  Transmission Date: 20080703
  Serious: Yes (Hospitalization)
  Sender: FDA-Public Use
  Company Number: US-BRISTOL-MYERS SQUIBB COMPANY-14032668

PATIENT
  Age: 49 Year
  Sex: Female
  Weight: 82 kg

DRUGS (5)
  1. IXEMPRA FOR INJ [Suspect]
     Indication: BREAST CANCER
     Route: 042
     Dates: start: 20071128, end: 20071128
  2. WARFARIN SODIUM [Concomitant]
     Indication: PULMONARY THROMBOSIS
     Dosage: STARTED IN JUNE OR JULY 2007. STOPPED ON ADMISSION AND REINSTITUTED 03-JAN-2008
     Route: 048
     Dates: start: 20070101
  3. HYDROCODONE [Concomitant]
  4. LORAZEPAM [Concomitant]
  5. TYLENOL [Concomitant]

REACTIONS (6)
  - BONE PAIN [None]
  - DIZZINESS [None]
  - PANCYTOPENIA [None]
  - PYREXIA [None]
  - SKIN NECROSIS [None]
  - STAPHYLOCOCCAL SEPSIS [None]
